FAERS Safety Report 17457350 (Version 1)
Quarter: 2020Q1

REPORT INFORMATION
  Report Type: Report from Study
  Country: NL (occurrence: NL)
  Receive Date: 20200225
  Receipt Date: 20200225
  Transmission Date: 20200409
  Serious: Yes (Other)
  Sender: FDA-Public Use
  Company Number: NVSC2020NL049425

PATIENT
  Sex: Female

DRUGS (2)
  1. SANDOSTATINE LAR [Suspect]
     Active Substance: OCTREOTIDE ACETATE
     Indication: NEUROENDOCRINE TUMOUR
     Dosage: UNK
     Route: 065
     Dates: start: 20140120
  2. SANDOSTATINE LAR [Suspect]
     Active Substance: OCTREOTIDE ACETATE
     Dosage: 30 MG(30 MG/2 ML)
     Route: 030
     Dates: start: 20190827

REACTIONS (2)
  - Coronary artery stenosis [Unknown]
  - Off label use [Unknown]
